FAERS Safety Report 15862377 (Version 1)
Quarter: 2019Q1

REPORT INFORMATION
  Report Type: Spontaneous
  Country: US (occurrence: US)
  Receive Date: 20190124
  Receipt Date: 20190124
  Transmission Date: 20190417
  Serious: No
  Sender: FDA-Public Use
  Company Number: US-PFIZER INC-2019031511

PATIENT
  Age: 45 Year
  Sex: Male

DRUGS (1)
  1. CAMPTOSAR [Suspect]
     Active Substance: IRINOTECAN HYDROCHLORIDE
     Dosage: 600 MG, MONTHLY [100 MG TIMES 3 VIALS, EVERY 14 DAYS SO THAT WOULD BE TWICE A MONTH]

REACTIONS (1)
  - Pain [Unknown]
